FAERS Safety Report 5596377-4 (Version None)
Quarter: 2008Q1

REPORT INFORMATION
  Report Type: 
  Country: None (occurrence: None)
  Receive Date: 20080118
  Receipt Date: 20080109
  Transmission Date: 20080703
  Serious: Yes (Hospitalization)
  Sender: FDA-Public Use
  Company Number: DK-GENENTECH-227825

PATIENT
  Sex: Male
  Weight: 77 kg

DRUGS (9)
  1. RITUXIMAB [Suspect]
     Indication: CHRONIC LYMPHOCYTIC LEUKAEMIA
     Dosage: 735 MG, Q28D
     Route: 042
     Dates: start: 20060322
  2. CYCLOPHOSPHAMIDE [Suspect]
     Indication: CHRONIC LYMPHOCYTIC LEUKAEMIA
     Dosage: 490 MG, Q28D
     Route: 042
     Dates: start: 20060322
  3. FLUDARABINE PHOSPHATE [Suspect]
     Indication: CHRONIC LYMPHOCYTIC LEUKAEMIA
     Dosage: 49 MG, Q28D
     Route: 042
     Dates: start: 20060322
  4. PREDNISOLONE [Suspect]
     Indication: CHRONIC LYMPHOCYTIC LEUKAEMIA
     Dosage: 100 MG, SINGLE
     Route: 048
     Dates: start: 20060711
  5. MONTELUKAST SODIUM [Suspect]
     Indication: CHRONIC LYMPHOCYTIC LEUKAEMIA
     Dosage: 10 MG, SINGLE
     Route: 048
     Dates: start: 20060711
  6. ONDANSETRON [Suspect]
     Indication: CHRONIC LYMPHOCYTIC LEUKAEMIA
     Dosage: 16 MG, X2
     Route: 048
     Dates: start: 20060712
  7. METOCLOPRAMIDE [Suspect]
     Indication: CHRONIC LYMPHOCYTIC LEUKAEMIA
     Dosage: 30 MG, X2
     Route: 048
     Dates: start: 20060712
  8. ALLOPURINOL [Suspect]
     Indication: CHRONIC LYMPHOCYTIC LEUKAEMIA
     Dosage: 300 MG, SINGLE
     Route: 048
     Dates: start: 20060712
  9. SULFAMETHOPRIM [Concomitant]
     Indication: DRUG USE FOR UNKNOWN INDICATION

REACTIONS (1)
  - FEBRILE NEUTROPENIA [None]
